FAERS Safety Report 4690812-1 (Version None)
Quarter: 2005Q2

REPORT INFORMATION
  Report Type: 
  Country: None (occurrence: None)
  Receive Date: 20050613
  Receipt Date: 20050601
  Transmission Date: 20051028
  Serious: Yes (Other)
  Sender: FDA-Public Use
  Company Number: HQWYE130302JUN05

PATIENT
  Age: 31 Year
  Sex: Female

DRUGS (5)
  1. RAPAMUNE [Suspect]
     Indication: PROPHYLAXIS AGAINST TRANSPLANT REJECTION
     Dosage: 3 MG 1X PER 1 DAY, ORAL
     Route: 048
     Dates: start: 20040710, end: 20050512
  2. CELLCEPT [Concomitant]
  3. PREDNISONE (PREDNISONE) [Concomitant]
  4. IRON (IRON) [Concomitant]
  5. VITAMIN C (ASCORBIC ACID) [Concomitant]

REACTIONS (1)
  - NEPHROTIC SYNDROME [None]
